FAERS Safety Report 8538836-8 (Version None)
Quarter: 2012Q3

REPORT INFORMATION
  Report Type: 
  Country: None (occurrence: None)
  Receive Date: 20120726
  Receipt Date: 20120724
  Transmission Date: 20120928
  Serious: No
  Sender: FDA-Public Use
  Company Number: US-PFIZER INC-2012156239

PATIENT

DRUGS (1)
  1. VFEND [Suspect]
     Dosage: UNK

REACTIONS (1)
  - ORTHOSTATIC HYPOTENSION [None]
